FAERS Safety Report 19846959 (Version 1)
Quarter: 2021Q3

REPORT INFORMATION
  Report Type: Spontaneous
  Country: US (occurrence: US)
  Receive Date: 20210917
  Receipt Date: 20210917
  Transmission Date: 20211014
  Serious: Yes (Other)
  Sender: FDA-Public Use
  Company Number: None

PATIENT
  Age: 70 Year
  Sex: Female
  Weight: 81.9 kg

DRUGS (2)
  1. PACLITAXEL. [Suspect]
     Active Substance: PACLITAXEL
     Indication: BREAST CANCER
     Dosage: ?          OTHER FREQUENCY:EVERY 21 DAYS;?
     Route: 041
     Dates: start: 20210917, end: 20210917
  2. PACLITAXEL. [Concomitant]
     Active Substance: PACLITAXEL
     Dates: start: 20210917, end: 20210917

REACTIONS (4)
  - Chest discomfort [None]
  - Dizziness [None]
  - Breath sounds abnormal [None]
  - Oxygen saturation decreased [None]

NARRATIVE: CASE EVENT DATE: 20210917
